FAERS Safety Report 11169771 (Version 1)
Quarter: 2015Q2

REPORT INFORMATION
  Report Type: Spontaneous
  Country: US (occurrence: None)
  Receive Date: 20150604
  Receipt Date: 20150604
  Transmission Date: 20150821
  Serious: Yes (Hospitalization, Other)
  Sender: FDA-Public Use
  Company Number: 2015HINLIT0469

PATIENT
  Age: 53 Year
  Sex: Female

DRUGS (1)
  1. LEVOFLOXACIN (LEVOFLOXACIN) [Suspect]
     Active Substance: LEVOFLOXACIN
     Indication: CELLULITIS

REACTIONS (6)
  - Haematoma [None]
  - Tendon pain [None]
  - Abscess [None]
  - Condition aggravated [None]
  - Clostridium bacteraemia [None]
  - Treatment failure [None]
